FAERS Safety Report 7410164-3 (Version None)
Quarter: 2011Q2

REPORT INFORMATION
  Report Type: 
  Country: None (occurrence: None)
  Receive Date: 20110412
  Receipt Date: 20110407
  Transmission Date: 20111010
  Serious: Yes (Other)
  Sender: FDA-Public Use
  Company Number: US-PFIZER INC-2011077465

PATIENT
  Sex: Male
  Weight: 70.748 kg

DRUGS (4)
  1. LYRICA [Suspect]
     Indication: SURGERY
  2. CELEBREX [Concomitant]
     Dosage: UNK
  3. LYRICA [Suspect]
     Indication: BACK INJURY
     Dosage: 100 MG, 2X/DAY
  4. WARFARIN [Concomitant]
     Dosage: UNK

REACTIONS (4)
  - OEDEMA PERIPHERAL [None]
  - DYSURIA [None]
  - PAIN IN EXTREMITY [None]
  - CEREBROVASCULAR ACCIDENT [None]
